FAERS Safety Report 6361278-0 (Version None)
Quarter: 2009Q3

REPORT INFORMATION
  Report Type: 
  Country: None (occurrence: None)
  Receive Date: 20090918
  Receipt Date: 20090911
  Transmission Date: 20100115
  Serious: Yes (Other)
  Sender: FDA-Public Use
  Company Number: US-JNJFOC-20090904314

PATIENT
  Sex: Female
  Weight: 107.5 kg

DRUGS (9)
  1. FENTANYL TRANSDERMAL SYSTEM [Suspect]
     Route: 062
  2. FENTANYL TRANSDERMAL SYSTEM [Suspect]
     Route: 062
  3. FENTANYL TRANSDERMAL SYSTEM [Suspect]
     Indication: BACK PAIN
     Route: 062
  4. ACTOS [Concomitant]
     Indication: DIABETES MELLITUS
     Route: 048
  5. GLIMEPIRIDE [Concomitant]
     Indication: DIABETES MELLITUS
     Route: 048
  6. FLEXERIL [Concomitant]
     Indication: FIBROMYALGIA
     Route: 065
  7. UNKNOWN MEDICATION [Concomitant]
     Indication: FIBROMYALGIA
     Route: 048
  8. CELEXA [Concomitant]
     Route: 048
  9. HYDROCODONE [Concomitant]
     Indication: BACK PAIN
     Dosage: 5/325 MG TABLET 5/325 MG TABLET 4 TIMES A DAY AS NEEDED
     Route: 048

REACTIONS (5)
  - BLOOD CHOLESTEROL INCREASED [None]
  - BLOOD PRESSURE INCREASED [None]
  - GALLBLADDER DISORDER [None]
  - HEART RATE INCREASED [None]
  - HYPERHIDROSIS [None]
